FAERS Safety Report 18804720 (Version 1)
Quarter: 2021Q1

REPORT INFORMATION
  Report Type: Spontaneous
  Country: US (occurrence: US)
  Receive Date: 20210128
  Receipt Date: 20210128
  Transmission Date: 20210419
  Serious: Yes (Death, Life-Threatening, Hospitalization)
  Sender: FDA-Public Use
  Company Number: US-TEVA-2021-US-1872003

PATIENT

DRUGS (1)
  1. TRIMETHOPRIM?SULFAMETHOXAZOLE [Suspect]
     Active Substance: SULFAMETHOXAZOLE\TRIMETHOPRIM
     Indication: SKIN INFECTION
     Route: 065

REACTIONS (7)
  - Pneumonitis [Unknown]
  - Pulmonary alveolar haemorrhage [Unknown]
  - Respiratory failure [Unknown]
  - Acute lung injury [Unknown]
  - Acute respiratory distress syndrome [Unknown]
  - Pneumomediastinum [Unknown]
  - Fungaemia [Fatal]
